FAERS Safety Report 5160003-9 (Version None)
Quarter: 2006Q4

REPORT INFORMATION
  Report Type: 
  Country: None (occurrence: None)
  Receive Date: 20061129
  Receipt Date: 20060613
  Transmission Date: 20070319
  Serious: No
  Sender: FDA-Public Use
  Company Number: US-GLAXOSMITHKLINE-A0608836A

PATIENT
  Age: 28 Year
  Sex: Male

DRUGS (2)
  1. WELLBUTRIN SR [Suspect]
     Dosage: 100MG TWICE PER DAY
     Route: 048
     Dates: start: 20060607
  2. PAXIL [Concomitant]
     Dosage: 20MG PER DAY
     Route: 048

REACTIONS (3)
  - SLEEP DISORDER [None]
  - TREMOR [None]
  - VOMITING [None]
